FAERS Safety Report 5533636-5 (Version None)
Quarter: 2007Q4

REPORT INFORMATION
  Report Type: 
  Country: None (occurrence: None)
  Receive Date: 20071204
  Receipt Date: 20071127
  Transmission Date: 20080405
  Serious: Yes (Other)
  Sender: FDA-Public Use
  Company Number: DE-BAYER-DE-2007-037987

PATIENT
  Sex: Female
  Weight: 75 kg

DRUGS (1)
  1. MIRENA [Suspect]
     Indication: CONTRACEPTION
     Dosage: TOTAL DAILY DOSE: 20 ?G/D  UNIT DOSE: 20 ?G/D
     Route: 015
     Dates: end: 20070101

REACTIONS (6)
  - ANXIETY [None]
  - DEPRESSION [None]
  - PALPITATIONS [None]
  - PANIC ATTACK [None]
  - SLEEP DISORDER [None]
  - TACHYCARDIA [None]
